FAERS Safety Report 6669519-7 (Version None)
Quarter: 2010Q2

REPORT INFORMATION
  Report Type: 
  Country: None (occurrence: None)
  Receive Date: 20100406
  Receipt Date: 20100406
  Transmission Date: 20101027
  Serious: Yes (Hospitalization)
  Sender: FDA-Public Use
  Company Number: PHHO2007NO08014

PATIENT
  Sex: Female
  Weight: 53 kg

DRUGS (7)
  1. ACLASTA/ZOLEDRONATE T29581+A+SOLINJ [Suspect]
     Indication: OSTEOPOROSIS POSTMENOPAUSAL
     Dosage: 5 MG ONCE A YEAR
     Route: 042
     Dates: start: 20050830
  2. CALCIUM [Concomitant]
     Indication: OSTEOPOROSIS POSTMENOPAUSAL
  3. VITAMIN D [Concomitant]
     Indication: OSTEOPOROSIS POSTMENOPAUSAL
  4. PREDNISOLONE [Concomitant]
     Dosage: 5 MG, QD
     Route: 048
  5. ALBYL-E [Concomitant]
     Dosage: 160 MG, QD
     Route: 048
  6. SERETIDE [Concomitant]
     Dosage: 50/250 MG 2 X DAY
  7. TOLVON [Concomitant]
     Dosage: 30 MG
     Route: 048

REACTIONS (5)
  - FALL [None]
  - HIP FRACTURE [None]
  - OSTEOSYNTHESIS [None]
  - PNEUMONIA [None]
  - POST PROCEDURAL COMPLICATION [None]
